FAERS Safety Report 11340222 (Version 1)
Quarter: 2015Q3

REPORT INFORMATION
  Report Type: Spontaneous
  Country: US (occurrence: None)
  Receive Date: 20150803
  Receipt Date: 20150803
  Transmission Date: 20151125
  Serious: Yes (Other)
  Sender: FDA-Public Use
  Company Number: 1224850-2015-00053

PATIENT
  Age: 60 Year
  Sex: Female
  Weight: 64.6 kg

DRUGS (8)
  1. 180 NRE OPTIFLUX DIALYZER [Concomitant]
  2. ALLOPURINOL. [Concomitant]
     Active Substance: ALLOPURINOL
  3. CALCIUM ACETATE 667 MG [Suspect]
     Active Substance: CALCIUM ACETATE
     Route: 048
  4. EPOGEN [Concomitant]
     Active Substance: ERYTHROPOIETIN
  5. CARBAMAZEPINE. [Concomitant]
     Active Substance: CARBAMAZEPINE
  6. CETIRIZINE [Concomitant]
     Active Substance: CETIRIZINE HYDROCHLORIDE
  7. HECTOROL [Concomitant]
     Active Substance: DOXERCALCIFEROL
  8. CLOPLDOGREL [Concomitant]

REACTIONS (1)
  - Seizure [None]

NARRATIVE: CASE EVENT DATE: 20150715
